FAERS Safety Report 5368440-4 (Version None)
Quarter: 2007Q2

REPORT INFORMATION
  Report Type: 
  Country: None (occurrence: None)
  Receive Date: 20070621
  Receipt Date: 20070621
  Transmission Date: 20071010
  Serious: Yes (Other)
  Sender: FDA-Public Use
  Company Number: None

PATIENT
  Age: 34 Year
  Sex: Female
  Weight: 68.0396 kg

DRUGS (1)
  1. CORTICOSTEROIDS 2MG, 4MG, 8MG, 12MG, 16MG, 24MG [Suspect]
     Indication: CROHN'S DISEASE
     Dosage: LOWER DOSE EVERY DAY EVERYDAY PO
     Route: 048
     Dates: start: 20070618, end: 20070628

REACTIONS (5)
  - CONFUSIONAL STATE [None]
  - CONVULSION [None]
  - DEPRESSION [None]
  - DEREALISATION [None]
  - WEIGHT INCREASED [None]
